FAERS Safety Report 8064635-X (Version None)
Quarter: 2012Q1

REPORT INFORMATION
  Report Type: 
  Country: None (occurrence: None)
  Receive Date: 20120123
  Receipt Date: 20120119
  Transmission Date: 20120608
  Serious: Yes (Death)
  Sender: FDA-Public Use
  Company Number: GR-ASTRAZENECA-2012SE04089

PATIENT
  Age: 39 Year
  Sex: Female
  Weight: 80 kg

DRUGS (2)
  1. ALOPERIDOL [Concomitant]
     Indication: BIPOLAR DISORDER
     Route: 042
     Dates: start: 20111205
  2. SEROQUEL XR [Suspect]
     Indication: BIPOLAR DISORDER
     Route: 048
     Dates: start: 20111205

REACTIONS (1)
  - DEATH [None]
